FAERS Safety Report 19902668 (Version 3)
Quarter: 2021Q4

REPORT INFORMATION
  Report Type: Spontaneous
  Country: US (occurrence: US)
  Receive Date: 20210930
  Receipt Date: 20211008
  Transmission Date: 20220303
  Serious: No
  Sender: FDA-Public Use
  Company Number: US-SANOFI-00787018

PATIENT
  Age: 88 Year
  Sex: Female

DRUGS (3)
  1. ALLEGRA ALLERGY [Suspect]
     Active Substance: FEXOFENADINE HYDROCHLORIDE
     Indication: Seasonal allergy
     Dosage: 180 MG, QD
  2. ALLEGRA ALLERGY [Suspect]
     Active Substance: FEXOFENADINE HYDROCHLORIDE
     Indication: Dermatitis
  3. ZYRTEC [Concomitant]
     Active Substance: CETIRIZINE HYDROCHLORIDE
     Indication: Dermatitis
     Dosage: UNK UNK, QD

REACTIONS (3)
  - Product taste abnormal [Unknown]
  - Therapeutic response decreased [Unknown]
  - Expired product administered [Unknown]
